FAERS Safety Report 24789070 (Version 4)
Quarter: 2025Q1

REPORT INFORMATION
  Report Type: Spontaneous
  Country: JP (occurrence: JP)
  Receive Date: 20241230
  Receipt Date: 20250324
  Transmission Date: 20250408
  Serious: Yes (Other)
  Sender: PFIZER
  Company Number: JP-ONO-2024JP026311

PATIENT
  Age: 69 Year
  Sex: Female
  Weight: 48 kg

DRUGS (4)
  1. MEKTOVI [Suspect]
     Active Substance: BINIMETINIB
     Indication: Malignant melanoma
     Dosage: 90 MG, Q12H
     Route: 048
     Dates: start: 20240822, end: 20240917
  2. MEKTOVI [Suspect]
     Active Substance: BINIMETINIB
     Route: 048
     Dates: start: 20240924, end: 20240927
  3. BRAFTOVI [Suspect]
     Active Substance: ENCORAFENIB
     Indication: Malignant melanoma
     Dosage: 300 MG, EVERYDAY
     Route: 048
     Dates: start: 20240822, end: 20240917
  4. BRAFTOVI [Suspect]
     Active Substance: ENCORAFENIB
     Route: 048
     Dates: start: 20240924, end: 20240927

REACTIONS (13)
  - Serous retinal detachment [Recovered/Resolved]
  - Blood creatine phosphokinase increased [Recovered/Resolved]
  - Pyrexia [Recovered/Resolved]
  - Hepatic function abnormal [Recovered/Resolved]
  - Fatigue [Unknown]
  - Nausea [Unknown]
  - Vision blurred [Unknown]
  - Blood bilirubin decreased [Recovered/Resolved]
  - Blood creatinine increased [Recovered/Resolved]
  - Blood sodium decreased [Recovered/Resolved]
  - Platelet count decreased [Recovered/Resolved]
  - Blood creatine phosphokinase decreased [Unknown]
  - Overdose [Unknown]

NARRATIVE: CASE EVENT DATE: 20240822
